FAERS Safety Report 4343543-1 (Version None)
Quarter: 2004Q2

REPORT INFORMATION
  Report Type: 
  Country: None (occurrence: None)
  Receive Date: 20040419
  Receipt Date: 20040406
  Transmission Date: 20050107
  Serious: Yes (Other)
  Sender: FDA-Public Use
  Company Number: S04-USA-01537-01

PATIENT
  Age: 28 Year
  Sex: Female

DRUGS (6)
  1. CELEXA [Suspect]
     Indication: DEPRESSION
     Dosage: 20 MG QD PO
     Route: 048
     Dates: start: 20010101
  2. CELEXA [Suspect]
     Indication: DEPRESSION
     Dosage: 40 MG QD PO
     Route: 048
  3. CELEXA [Suspect]
     Indication: DEPRESSION
     Dosage: 20 MG QD PO
     Route: 048
  4. NAVANE [Concomitant]
  5. BIRTH CONMTROL PILLS [Concomitant]
  6. HERBALS [Concomitant]

REACTIONS (1)
  - BLOOD PRESSURE INCREASED [None]
